FAERS Safety Report 6386600-0 (Version None)
Quarter: 2009Q4

REPORT INFORMATION
  Report Type: 
  Country: None (occurrence: None)
  Receive Date: 20091002
  Receipt Date: 20090313
  Transmission Date: 20100525
  Serious: Yes (Hospitalization)
  Sender: FDA-Public Use
  Company Number: US-ASTRAZENECA-2009UW06683

PATIENT
  Age: 68 Year
  Sex: Female
  Weight: 67.1 kg

DRUGS (2)
  1. ARIMIDEX [Suspect]
     Indication: BREAST CANCER
     Route: 048
     Dates: start: 20090114
  2. CALCIUM WITH VITAMIN D [Concomitant]

REACTIONS (5)
  - ARTHRALGIA [None]
  - CARPAL TUNNEL SYNDROME [None]
  - FATIGUE [None]
  - HYPOAESTHESIA [None]
  - PAIN IN EXTREMITY [None]
